FAERS Safety Report 6289380-2 (Version None)
Quarter: 2009Q3

REPORT INFORMATION
  Report Type: 
  Country: None (occurrence: None)
  Receive Date: 20090728
  Receipt Date: 20090728
  Transmission Date: 20100115
  Serious: Yes (Other)
  Sender: FDA-Public Use
  Company Number: None

PATIENT
  Age: 40 Year
  Sex: Male
  Weight: 91.2 kg

DRUGS (2)
  1. PAROXETINE HCL [Suspect]
  2. ZYPREXA [Suspect]

REACTIONS (2)
  - NEUROLEPTIC MALIGNANT SYNDROME [None]
  - RHABDOMYOLYSIS [None]
